FAERS Safety Report 9450897 (Version 2)
Quarter: 2013Q3

REPORT INFORMATION
  Report Type: Spontaneous
  Country: US (occurrence: US)
  Receive Date: 20130809
  Receipt Date: 20130913
  Transmission Date: 20140515
  Serious: No
  Sender: FDA-Public Use
  Company Number: US-009507513-1308USA000965

PATIENT
  Age: 20 Year
  Sex: Female
  Weight: 58.28 kg

DRUGS (1)
  1. NEXPLANON [Suspect]
     Indication: CONTRACEPTION
     Dosage: 1 ROD
     Route: 059
     Dates: start: 20130725, end: 20130730

REACTIONS (3)
  - Device expulsion [Recovered/Resolved]
  - Injection site scab [Recovered/Resolved]
  - Implant site scar [Recovered/Resolved]
